FAERS Safety Report 24284436 (Version 1)
Quarter: 2024Q3

REPORT INFORMATION
  Report Type: Spontaneous
  Country: CN (occurrence: CN)
  Receive Date: 20240905
  Receipt Date: 20240905
  Transmission Date: 20241016
  Serious: Yes (Other)
  Sender: ORGANON
  Company Number: CN-ORGANON-O2409CHN000066

PATIENT
  Age: 59 Year
  Sex: Female
  Weight: 50 kg

DRUGS (4)
  1. DIPROSPAN [Suspect]
     Active Substance: BETAMETHASONE DIPROPIONATE\BETAMETHASONE SODIUM PHOSPHATE
     Indication: Joint stiffness
     Dosage: 1 ML, QD, INTRAARTICULAR USE||
     Route: 014
     Dates: start: 20240731, end: 20240731
  2. SODIUM HYALURONATE [Suspect]
     Active Substance: HYALURONATE SODIUM
     Indication: Joint stiffness
     Dosage: 2.5 ML, QD, INTRAARTICULAR USE||
     Route: 014
     Dates: start: 20240731, end: 20240731
  3. LIDOCAINE HYDROCHLORIDE [Suspect]
     Active Substance: LIDOCAINE HYDROCHLORIDE
     Indication: Local anaesthesia
     Dosage: 2.0 ML, QD, LOCAL ANESTHESIA||
     Dates: start: 20240731, end: 20240731
  4. SODIUM CHLORIDE [Concomitant]
     Active Substance: SODIUM CHLORIDE
     Indication: Product used for unknown indication
     Dosage: 2 ML, QD INTRAARTICULAR USE||
     Route: 014
     Dates: start: 20240731, end: 20240731

REACTIONS (2)
  - Urticaria [Recovered/Resolved]
  - Pruritus [Recovered/Resolved]

NARRATIVE: CASE EVENT DATE: 20240731
